FAERS Safety Report 7362655-1 (Version None)
Quarter: 2011Q1

REPORT INFORMATION
  Report Type: 
  Country: None (occurrence: None)
  Receive Date: 20110321
  Receipt Date: 20110311
  Transmission Date: 20110831
  Serious: Yes (Hospitalization)
  Sender: FDA-Public Use
  Company Number: US-BIOGENIDEC-2010BI022023

PATIENT
  Age: 63 Year
  Sex: Female
  Weight: 86 kg

DRUGS (18)
  1. ACETAMINOPHEN [Concomitant]
     Route: 048
  2. CYMBALTA [Concomitant]
     Route: 048
  3. LISINOPRIL [Concomitant]
     Route: 048
  4. LISINOPRIL [Concomitant]
     Route: 048
  5. DIAZEPAM [Concomitant]
     Route: 048
  6. MIRAPEX [Concomitant]
     Route: 048
  7. MELOXICAM [Concomitant]
     Route: 048
  8. TRAMADOL HCL [Concomitant]
     Route: 048
  9. VITAMIN D [Concomitant]
  10. OXYBUTYNIN [Concomitant]
     Route: 048
  11. HYDROCODONE BITARTRATE [Concomitant]
     Route: 048
  12. THYROID ARMOUR [Concomitant]
     Route: 048
  13. IBUPROFEN [Concomitant]
     Route: 048
  14. PROZAC [Concomitant]
     Route: 048
  15. METOPROLOL [Concomitant]
     Route: 048
  16. TYSABRI [Suspect]
     Indication: MULTIPLE SCLEROSIS
     Route: 042
     Dates: start: 20090330, end: 20100510
  17. LYRICA [Concomitant]
     Route: 048
  18. EXELON [Concomitant]

REACTIONS (5)
  - MULTIPLE SCLEROSIS RELAPSE [None]
  - ANAEMIA [None]
  - ASTHENIA [None]
  - JOINT INJURY [None]
  - PYELONEPHRITIS [None]
